FAERS Safety Report 8320562-1 (Version None)
Quarter: 2012Q2

REPORT INFORMATION
  Report Type: 
  Country: None (occurrence: None)
  Receive Date: 20120430
  Receipt Date: 20120424
  Transmission Date: 20120825
  Serious: Yes (Other)
  Sender: FDA-Public Use
  Company Number: US-PFIZER INC-2012082510

PATIENT
  Sex: Female

DRUGS (11)
  1. LAMOTRIGINE [Concomitant]
     Dosage: 75 MG, 2X/DAY
  2. VITAMIN C [Concomitant]
  3. FLOMAX ^CSL^ [Concomitant]
     Dosage: 0.4 MG, 1X/DAY
  4. MULTI-VITAMINS [Concomitant]
  5. VITAMIN B-12 [Concomitant]
     Dosage: 1000 MG, UNK
  6. TIZANIDINE [Concomitant]
     Dosage: 6 MG, 1X/DAY
  7. LYRICA [Suspect]
     Dosage: 50 MG, 2X/DAY
  8. AVONEX ^CSL^ [Concomitant]
  9. BACLOFEN [Concomitant]
     Dosage: 20 MG, 4X/DAY
  10. VITAMIN D [Concomitant]
     Dosage: 1000 MG, UNK
  11. MEGA-RED [Concomitant]
     Dosage: 300 MG, UNK

REACTIONS (3)
  - CONVULSION [None]
  - MULTIPLE SCLEROSIS [None]
  - ARACHNOID CYST [None]
